FAERS Safety Report 7106128-X (Version None)
Quarter: 2010Q4

REPORT INFORMATION
  Report Type: 
  Country: None (occurrence: None)
  Receive Date: 20101116
  Receipt Date: 20101105
  Transmission Date: 20110411
  Serious: Yes (Death, Hospitalization, Other)
  Sender: FDA-Public Use
  Company Number: A0882225A

PATIENT
  Sex: Male
  Weight: 75.3 kg

DRUGS (4)
  1. OFATUMUMAB [Suspect]
     Dosage: 4300MG CUMULATIVE DOSE
     Route: 042
     Dates: start: 20100902, end: 20100916
  2. PARACETAMOL [Concomitant]
     Dosage: 3000MG CUMULATIVE DOSE
     Dates: start: 20100902
  3. CHLORPHENIRAMINE MALEATE [Concomitant]
     Dosage: 30MG CUMULATIVE DOSE
     Dates: start: 20100902
  4. DEXAMETHASONE [Concomitant]
     Dosage: 37.5MG CUMULATIVE DOSE
     Dates: start: 20100902

REACTIONS (4)
  - DEATH [None]
  - HYPERCALCAEMIA [None]
  - MELANOMA RECURRENT [None]
  - RENAL FAILURE [None]
